FAERS Safety Report 4383050-3 (Version None)
Quarter: 2004Q2

REPORT INFORMATION
  Report Type: 
  Country: None (occurrence: None)
  Receive Date: 20040615
  Receipt Date: 20030807
  Transmission Date: 20050107
  Serious: No
  Sender: FDA-Public Use
  Company Number: 3003201001/AKO-31242958-AE

PATIENT
  Age: 39 Year
  Sex: Female
  Weight: 64.8644 kg

DRUGS (3)
  1. DROPERIDOL [Suspect]
     Indication: NAUSEA
     Dosage: 1.25 MG, 1X, IV
     Route: 042
     Dates: start: 20030904
  2. DILAUDID [Concomitant]
  3. NITROGLYCERIN [Concomitant]

REACTIONS (1)
  - DYSTONIA [None]
